FAERS Safety Report 8527738 (Version 2)
Quarter: 2015Q1

REPORT INFORMATION
  Report Type: Report from Study
  Country: US (occurrence: US)
  Receive Date: 20120424
  Receipt Date: 20150318
  Transmission Date: 20150721
  Serious: Yes (Death)
  Sender: FDA-Public Use
  Company Number: US-ROCHE-1062184

PATIENT
  Age: 55 Year
  Sex: Male

DRUGS (3)
  1. XELODA [Suspect]
     Active Substance: CAPECITABINE
     Route: 048
  2. XELODA [Suspect]
     Active Substance: CAPECITABINE
     Indication: RECTAL CANCER
     Route: 048
  3. XELODA [Suspect]
     Active Substance: CAPECITABINE
     Dosage: 4 TABLETS 2 TIMES A DAY FOR 14 DAYS, 7 DAY OFF
     Route: 048

REACTIONS (1)
  - Death [Fatal]

NARRATIVE: CASE EVENT DATE: 20120413
